FAERS Safety Report 9450423 (Version 1)
Quarter: 2013Q3

REPORT INFORMATION
  Report Type: Spontaneous
  Country: JP (occurrence: JP)
  Receive Date: 20130809
  Receipt Date: 20130809
  Transmission Date: 20140515
  Serious: Yes (Hospitalization)
  Sender: FDA-Public Use
  Company Number: JP-SANOFI-AVENTIS-2013SA077888

PATIENT
  Age: 62 Year
  Sex: Male
  Weight: 61 kg

DRUGS (8)
  1. ELPLAT [Suspect]
     Indication: COLON CANCER
     Route: 041
  2. ELPLAT [Suspect]
     Indication: COLON CANCER
     Route: 041
     Dates: start: 20130704, end: 20130704
  3. CALCIUM LEVOFOLINATE [Concomitant]
  4. 5-FU [Concomitant]
  5. AVASTIN [Concomitant]
  6. PROEMEND [Concomitant]
  7. ALOXI [Concomitant]
  8. DEXART [Concomitant]

REACTIONS (5)
  - Sensation of foreign body [Recovering/Resolving]
  - Dizziness [Recovering/Resolving]
  - Hypoaesthesia [Recovering/Resolving]
  - Dysarthria [Recovering/Resolving]
  - Rash [Recovering/Resolving]
